FAERS Safety Report 4634298-1 (Version None)
Quarter: 2005Q2

REPORT INFORMATION
  Report Type: 
  Country: None (occurrence: None)
  Receive Date: 20050411
  Receipt Date: 20021122
  Transmission Date: 20051028
  Serious: No
  Sender: FDA-Public Use
  Company Number: 4598

PATIENT
  Age: 40 Year
  Sex: 0

DRUGS (1)
  1. BLEOMYCIN [Suspect]
     Indication: HODGKIN'S DISEASE

REACTIONS (1)
  - ALVEOLITIS [None]
